FAERS Safety Report 4931766-X (Version None)
Quarter: 2006Q1

REPORT INFORMATION
  Report Type: 
  Country: None (occurrence: None)
  Receive Date: 20060303
  Receipt Date: 20060127
  Transmission Date: 20060701
  Serious: Yes (Death, Hospitalization)
  Sender: FDA-Public Use
  Company Number: US-BRISTOL-MYERS SQUIBB COMPANY-13261987

PATIENT
  Age: 57 Year
  Sex: Male

DRUGS (24)
  1. ENKAID [Suspect]
     Indication: VENTRICULAR TACHYCARDIA
     Route: 048
     Dates: start: 19871101, end: 20051201
  2. ISORDIL [Concomitant]
  3. K-DUR 10 [Concomitant]
  4. TORSEMIDE [Concomitant]
     Dates: start: 20050309
  5. DIGOXIN [Concomitant]
  6. FOLIC ACID [Concomitant]
  7. DIOVAN [Concomitant]
  8. ECOTRIN [Concomitant]
  9. ZOLOFT [Concomitant]
  10. AMBIEN [Concomitant]
  11. LORAZEPAM [Concomitant]
  12. SYNTHROID [Concomitant]
  13. GLIPIZIDE [Concomitant]
  14. LANTUS [Concomitant]
     Dosage: DOSE = 10-15 UNITS
  15. PROTONIX [Concomitant]
     Indication: ULCER
  16. GABAPENTIN [Concomitant]
  17. MAGNESIUM [Concomitant]
  18. FERROUS SULFATE TAB [Concomitant]
  19. VITAMIN B6 [Concomitant]
  20. VITAMIN B-12 [Concomitant]
  21. TYLENOL (CAPLET) [Concomitant]
     Indication: NEUROPATHY PERIPHERAL
  22. CENTRUM [Concomitant]
  23. METOLAZONE [Concomitant]
  24. VITAMIN B-12 [Concomitant]
     Indication: NEUROPATHY PERIPHERAL
     Route: 030

REACTIONS (2)
  - DEATH [None]
  - SEPSIS [None]
